FAERS Safety Report 17694286 (Version 6)
Quarter: 2023Q2

REPORT INFORMATION
  Report Type: Spontaneous
  Country: CA (occurrence: CA)
  Receive Date: 20200422
  Receipt Date: 20230424
  Transmission Date: 20230722
  Serious: Yes (Other)
  Sender: FDA-Public Use
  Company Number: CA-NOVARTISPH-NVSC2020CA102924

PATIENT
  Age: 60 Year
  Sex: Female

DRUGS (95)
  1. FORADIL [Suspect]
     Active Substance: FORMOTEROL FUMARATE
     Indication: Product used for unknown indication
     Dosage: 2 DOSAGE FORM, QD
     Route: 065
  2. FORADIL [Suspect]
     Active Substance: FORMOTEROL FUMARATE
     Dosage: 2 DOSAGE FORM, QD
     Route: 065
  3. ESTRADIOL [Suspect]
     Active Substance: ESTRADIOL
     Indication: Product used for unknown indication
     Dosage: 3 DOSAGE FORM, QD
     Route: 065
  4. ESTRADIOL [Suspect]
     Active Substance: ESTRADIOL
     Dosage: 1 DOSAGE FORM, QD
     Route: 065
  5. FLUCONAZOLE [Suspect]
     Active Substance: FLUCONAZOLE
     Indication: Product used for unknown indication
     Dosage: 50 MG
     Route: 065
  6. FLUCONAZOLE [Suspect]
     Active Substance: FLUCONAZOLE
     Dosage: 50 MG, Q3W
     Route: 065
  7. FORMOTEROL [Suspect]
     Active Substance: FORMOTEROL
     Indication: Product used for unknown indication
     Dosage: 2 DOSAGE FORM, QD
     Route: 065
  8. FORMOTEROL [Suspect]
     Active Substance: FORMOTEROL
     Dosage: 2 DOSAGE FORM, QD
     Route: 065
  9. FORMOTEROL [Suspect]
     Active Substance: FORMOTEROL
     Dosage: UNK, QD
     Route: 065
  10. FORMOTEROL [Suspect]
     Active Substance: FORMOTEROL
     Dosage: UNK
     Route: 065
  11. FORMOTEROL [Suspect]
     Active Substance: FORMOTEROL
     Dosage: 1 DOSAGE FORM, QD
     Route: 065
  12. FORMOTEROL [Suspect]
     Active Substance: FORMOTEROL
     Dosage: 2 DOSAGE FORM, QD
     Route: 065
  13. FORMOTEROL [Suspect]
     Active Substance: FORMOTEROL
     Dosage: 2 DOSAGE FORM, QD, INHALATION POWDER
     Route: 065
  14. OXYCODONE HYDROCHLORIDE [Suspect]
     Active Substance: OXYCODONE HYDROCHLORIDE
     Indication: Product used for unknown indication
     Dosage: 2 DOSAGE FORM, QD
     Route: 065
  15. OXYCODONE HYDROCHLORIDE [Suspect]
     Active Substance: OXYCODONE HYDROCHLORIDE
     Dosage: 3 DOSAGE FORM, QD
     Route: 065
  16. MONTELUKAST [Suspect]
     Active Substance: MONTELUKAST SODIUM
     Indication: Product used for unknown indication
     Dosage: 1 DOSAGE FORM, QD
     Route: 065
  17. MONTELUKAST [Suspect]
     Active Substance: MONTELUKAST SODIUM
     Dosage: 2 DOSAGE FORM, QD
     Route: 065
  18. MONTELUKAST [Suspect]
     Active Substance: MONTELUKAST SODIUM
     Dosage: 1 DOSAGE FORM, QD, TABLET
     Route: 065
  19. RISEDRONATE SODIUM [Suspect]
     Active Substance: RISEDRONATE SODIUM
     Indication: Product used for unknown indication
     Dosage: 35 MG, QW
     Route: 065
  20. PANTOPRAZOLE [Suspect]
     Active Substance: PANTOPRAZOLE
     Indication: Product used for unknown indication
     Dosage: 40 MG, BID (2 DOSAGE FROM)
     Route: 065
  21. CLARITHROMYCIN [Suspect]
     Active Substance: CLARITHROMYCIN
     Indication: Product used for unknown indication
     Dosage: 2 DOSAGE FORM, QD
     Route: 065
  22. CLARITHROMYCIN [Suspect]
     Active Substance: CLARITHROMYCIN
     Dosage: 2 DOSAGE FORM, QD
     Route: 065
  23. CLARITHROMYCIN [Suspect]
     Active Substance: CLARITHROMYCIN
     Dosage: 2 MG
     Route: 065
  24. ACTONEL [Suspect]
     Active Substance: RISEDRONATE SODIUM
     Indication: Product used for unknown indication
     Dosage: 1 DOSAGE FORM, QW
     Route: 065
  25. ALBUTEROL SULFATE [Suspect]
     Active Substance: ALBUTEROL SULFATE
     Indication: Product used for unknown indication
     Dosage: UNK
     Route: 065
  26. ALBUTEROL SULFATE [Suspect]
     Active Substance: ALBUTEROL SULFATE
     Dosage: UNK, METERED-DOSE (AEROSOL)
     Route: 065
  27. ALBUTEROL SULFATE [Suspect]
     Active Substance: ALBUTEROL SULFATE
     Dosage: UNK, METERED-DOSE (AEROSOL)
     Route: 065
  28. ALBUTEROL SULFATE [Suspect]
     Active Substance: ALBUTEROL SULFATE
     Dosage: UNK
     Route: 065
  29. FORMOTEROL FUMARATE [Suspect]
     Active Substance: FORMOTEROL FUMARATE
     Indication: Product used for unknown indication
     Dosage: 2 DOSAGE FORM, QD
     Route: 065
  30. FORMOTEROL FUMARATE [Suspect]
     Active Substance: FORMOTEROL FUMARATE
     Dosage: UNK
     Route: 065
  31. BREO ELLIPTA [Suspect]
     Active Substance: FLUTICASONE FUROATE\VILANTEROL TRIFENATATE
     Indication: Product used for unknown indication
     Dosage: 1 DOSAGE FORM, QD, INHALATION SOLUTION, INTRANASAL ROUTE
     Route: 065
  32. BREO ELLIPTA [Suspect]
     Active Substance: FLUTICASONE FUROATE\VILANTEROL TRIFENATATE
     Dosage: UNK, INHALATION POWDER
  33. COLACE [Suspect]
     Active Substance: DOCUSATE SODIUM
     Indication: Product used for unknown indication
     Dosage: 200 MG, QD
     Route: 065
  34. COLACE [Suspect]
     Active Substance: DOCUSATE SODIUM
     Dosage: 3 DOSAGE FORM
     Route: 065
  35. FLUTICASONE PROPIONATE [Suspect]
     Active Substance: FLUTICASONE PROPIONATE
     Indication: Product used for unknown indication
     Dosage: 2 DOSAGE FORM, QD
     Route: 065
  36. FLUTICASONE PROPIONATE [Suspect]
     Active Substance: FLUTICASONE PROPIONATE
     Dosage: UNK
     Route: 065
  37. ALBUTEROL\IPRATROPIUM [Suspect]
     Active Substance: ALBUTEROL\IPRATROPIUM
     Indication: Product used for unknown indication
     Dosage: UNK
     Route: 065
  38. ALBUTEROL\IPRATROPIUM [Suspect]
     Active Substance: ALBUTEROL\IPRATROPIUM
     Dosage: 2 DOSAGE FORM, QD
     Route: 065
  39. NYSTATIN [Suspect]
     Active Substance: NYSTATIN
     Indication: Product used for unknown indication
     Dosage: 2 DOSAGE FORM, QD
     Route: 065
  40. NYSTATIN [Suspect]
     Active Substance: NYSTATIN
     Dosage: 3 DOSAGE FORM, QD
     Route: 048
  41. NYSTATIN [Suspect]
     Active Substance: NYSTATIN
     Dosage: 1 DOSAGE FORM, QD
     Route: 048
  42. NYSTATIN [Suspect]
     Active Substance: NYSTATIN
     Dosage: UNK
     Route: 065
  43. NYSTATIN [Suspect]
     Active Substance: NYSTATIN
     Dosage: 3 DOSAGE FORM, QD
     Route: 048
  44. NYSTATIN [Suspect]
     Active Substance: NYSTATIN
     Dosage: 3 DOSAGE FORM, QD, TABLET
     Route: 048
  45. NYSTATIN [Suspect]
     Active Substance: NYSTATIN
     Dosage: 3 DOSAGE FORM, QD, SOLUTION
     Route: 048
  46. OXYCODONE [Suspect]
     Active Substance: OXYCODONE
     Indication: Product used for unknown indication
     Dosage: 3 DOSAGE FORM, QD
     Route: 065
  47. OXYCODONE [Suspect]
     Active Substance: OXYCODONE
     Dosage: 2 DOSAGE FORM, QD
     Route: 065
  48. OXYCODONE [Suspect]
     Active Substance: OXYCODONE
     Dosage: 3 DOSAGE FORM, QD
     Route: 065
  49. OXYCODONE [Suspect]
     Active Substance: OXYCODONE
     Dosage: 15 MG, TID
     Route: 065
  50. PREDNISONE [Suspect]
     Active Substance: PREDNISONE
     Indication: Product used for unknown indication
     Dosage: 1 DOSAGE FORM, QD
     Route: 065
  51. PREDNISONE [Suspect]
     Active Substance: PREDNISONE
     Dosage: 2 DOSAGE FORM, QD
     Route: 065
  52. PREDNISONE [Suspect]
     Active Substance: PREDNISONE
     Dosage: UNK
     Route: 065
  53. RIVAROXABAN [Suspect]
     Active Substance: RIVAROXABAN
     Indication: Product used for unknown indication
     Dosage: 2 DOSAGE FORM, QD
     Route: 065
  54. RIVAROXABAN [Suspect]
     Active Substance: RIVAROXABAN
     Dosage: 1 DOSAGE FORM, QD
     Route: 065
  55. UMECLIDINIUM BROMIDE [Suspect]
     Active Substance: UMECLIDINIUM BROMIDE
     Indication: Product used for unknown indication
     Dosage: 1 DOSAGE FORM, QD
     Route: 065
  56. VENTOLIN [Suspect]
     Active Substance: ALBUTEROL SULFATE
     Indication: Product used for unknown indication
     Dosage: 2 DOSAGE FORM, QD
     Route: 065
  57. VENTOLIN [Suspect]
     Active Substance: ALBUTEROL SULFATE
     Dosage: UNK
     Route: 065
  58. ALBUTEROL [Suspect]
     Active Substance: ALBUTEROL
     Indication: Product used for unknown indication
     Dosage: 1 DOSAGE FORM, QD
     Route: 065
  59. PSYLLIUM HUSK [Suspect]
     Active Substance: PSYLLIUM HUSK
     Indication: Product used for unknown indication
     Dosage: UNK
     Route: 065
  60. PROCTOFOAM [Suspect]
     Active Substance: PRAMOXINE HYDROCHLORIDE
     Indication: Product used for unknown indication
     Dosage: UNK
     Route: 065
  61. FLONASE [Suspect]
     Active Substance: FLUTICASONE PROPIONATE
     Indication: Product used for unknown indication
     Dosage: 1 DOSAGE FORM, QD
     Route: 065
  62. FLONASE [Suspect]
     Active Substance: FLUTICASONE PROPIONATE
     Dosage: 2 DOSAGE FORM, QD
     Route: 065
  63. ESOMEPRAZOLE MAGNESIUM [Suspect]
     Active Substance: ESOMEPRAZOLE MAGNESIUM
     Indication: Product used for unknown indication
     Dosage: 2 DOSAGE FORM, QD
     Route: 065
  64. ESOMEPRAZOLE MAGNESIUM [Suspect]
     Active Substance: ESOMEPRAZOLE MAGNESIUM
     Dosage: 2 DOSAGE FORM, QD
     Route: 048
  65. HYDROCORTISONE [Suspect]
     Active Substance: HYDROCORTISONE
     Indication: Product used for unknown indication
     Dosage: UNK
     Route: 065
  66. AMOXICILLIN [Suspect]
     Active Substance: AMOXICILLIN
     Indication: Product used for unknown indication
     Dosage: 40 MG, BID
     Route: 065
  67. AMOXICILLIN [Suspect]
     Active Substance: AMOXICILLIN
     Dosage: 2 DOSAGE FORM, QD
     Route: 065
  68. AMOXICILLIN\CLAVULANATE POTASSIUM [Suspect]
     Active Substance: AMOXICILLIN\CLAVULANATE POTASSIUM
     Indication: Product used for unknown indication
     Dosage: 2 DOSAGE FORM, QD
     Route: 065
  69. AMOXICILLIN\CLAVULANATE POTASSIUM [Suspect]
     Active Substance: AMOXICILLIN\CLAVULANATE POTASSIUM
     Dosage: 2.0 MG, (4 DOSAGE FORM), QD
     Route: 065
  70. AMOXICILLIN TRIHYDRATE [Suspect]
     Active Substance: AMOXICILLIN
     Indication: Product used for unknown indication
     Dosage: 2 DOSAGE FORM, QD
     Route: 065
  71. AMOXICILLIN TRIHYDRATE [Suspect]
     Active Substance: AMOXICILLIN
     Dosage: 1 DOSAGE FORM
     Route: 065
  72. ALBUTEROL [Suspect]
     Active Substance: ALBUTEROL
     Indication: Product used for unknown indication
     Dosage: UNK
     Route: 065
  73. BALSAM PERU\BENZYL BENZOATE\BISMUTH OXIDE\HYDROCORTISONE ACETATE\PRAMO [Suspect]
     Active Substance: BALSAM PERU\BENZYL BENZOATE\BISMUTH OXIDE\HYDROCORTISONE ACETATE\PRAMOXINE HYDROCHLORIDE\ZINC OXIDE
     Indication: Product used for unknown indication
     Dosage: UNK
     Route: 065
  74. BALSAM PERU\BENZYL BENZOATE\BISMUTH OXIDE\HYDROCORTISONE ACETATE\PRAMO [Suspect]
     Active Substance: BALSAM PERU\BENZYL BENZOATE\BISMUTH OXIDE\HYDROCORTISONE ACETATE\PRAMOXINE HYDROCHLORIDE\ZINC OXIDE
     Dosage: UNK, CREAM
     Route: 065
  75. BALSAM PERU\BENZYL BENZOATE\BISMUTH OXIDE\HYDROCORTISONE ACETATE\PRAMO [Suspect]
     Active Substance: BALSAM PERU\BENZYL BENZOATE\BISMUTH OXIDE\HYDROCORTISONE ACETATE\PRAMOXINE HYDROCHLORIDE\ZINC OXIDE
     Dosage: UNK, OINTMENT
     Route: 065
  76. BUDESONIDE [Suspect]
     Active Substance: BUDESONIDE
     Indication: Product used for unknown indication
     Dosage: 2 DOSAGE FORM, QD
     Route: 065
  77. POLYMOX [Suspect]
     Active Substance: AMOXICILLIN
     Indication: Product used for unknown indication
     Dosage: UNK
     Route: 065
  78. POLYMOX [Suspect]
     Active Substance: AMOXICILLIN
     Dosage: 2 DOSAGE FORM, QD
     Route: 065
  79. XARELTO [Suspect]
     Active Substance: RIVAROXABAN
     Indication: Product used for unknown indication
     Dosage: 1 DOSAGE FORM, QD, COATED TABLET
     Route: 065
  80. XARELTO [Suspect]
     Active Substance: RIVAROXABAN
     Dosage: 1 DOSAGE FORM, QD, COATED TABLET
     Route: 065
  81. XARELTO [Suspect]
     Active Substance: RIVAROXABAN
     Dosage: 1 DOSAGE FORM, QD, TABLET
     Route: 065
  82. ZINC [Suspect]
     Active Substance: ZINC
     Indication: Product used for unknown indication
     Dosage: UNK
     Route: 065
  83. ZINC [Suspect]
     Active Substance: ZINC
     Dosage: UNK
     Route: 048
  84. PRAMOXINE [Suspect]
     Active Substance: PRAMOXINE
     Indication: Product used for unknown indication
     Dosage: UNK
     Route: 061
  85. PRAMOXINE [Suspect]
     Active Substance: PRAMOXINE
     Dosage: UNK, OINTMENT
     Route: 061
  86. ZINC SULFATE [Suspect]
     Active Substance: ZINC SULFATE
     Indication: Product used for unknown indication
     Dosage: UNK, OINTMENT
     Route: 061
  87. ZINC SULFATE [Suspect]
     Active Substance: ZINC SULFATE
     Dosage: UNK
     Route: 065
  88. ZINC SULFATE [Suspect]
     Active Substance: ZINC SULFATE
     Dosage: UNK, CREAM
     Route: 061
  89. METAMUCIL [Concomitant]
     Active Substance: PLANTAGO SEED
     Indication: Product used for unknown indication
     Dosage: 2 DOSAGE FORM, QD
     Route: 065
  90. METAMUCIL [Concomitant]
     Active Substance: PLANTAGO SEED
     Dosage: UNK
     Route: 065
  91. VITAMINS [Concomitant]
     Active Substance: VITAMINS
     Indication: Product used for unknown indication
     Dosage: 2 DOSAGE FORM, QD
     Route: 065
  92. VITAMINS [Concomitant]
     Active Substance: VITAMINS
     Dosage: UNK
     Route: 065
  93. PULMICORT TURBUHALER [Concomitant]
     Active Substance: BUDESONIDE
     Indication: Seasonal allergy
     Dosage: 2 DOSAGE FORM, QD, INTRANASAL
     Route: 065
  94. DEXPANTHENOL [Concomitant]
     Active Substance: DEXPANTHENOL
     Indication: Product used for unknown indication
     Dosage: UNK
     Route: 065
  95. PSYLLIUM HUSK [Concomitant]
     Active Substance: PSYLLIUM HUSK
     Indication: Product used for unknown indication
     Dosage: UNK
     Route: 065

REACTIONS (34)
  - Asthma [Unknown]
  - Candida infection [Unknown]
  - Chest discomfort [Unknown]
  - Chronic sinusitis [Unknown]
  - Deep vein thrombosis [Unknown]
  - Diastolic dysfunction [Unknown]
  - Disease recurrence [Unknown]
  - Diverticulum [Unknown]
  - Dyspnoea [Unknown]
  - Dyspnoea exertional [Unknown]
  - Eczema [Unknown]
  - Emphysema [Unknown]
  - Female genital tract fistula [Unknown]
  - Fungal infection [Unknown]
  - Gastrooesophageal reflux disease [Unknown]
  - Hiatus hernia [Unknown]
  - Iron deficiency anaemia [Unknown]
  - Lower respiratory tract infection [Unknown]
  - Nasal polyps [Unknown]
  - Obstructive airways disorder [Unknown]
  - Osteoarthritis [Unknown]
  - Osteoporosis [Unknown]
  - Respiratory symptom [Unknown]
  - Sinusitis [Unknown]
  - Sinusitis fungal [Unknown]
  - Sleep apnoea syndrome [Unknown]
  - Sputum increased [Unknown]
  - Tricuspid valve incompetence [Unknown]
  - Wheezing [Unknown]
  - Embolism venous [Unknown]
  - Weight increased [Unknown]
  - Pulmonary embolism [Unknown]
  - Cough [Unknown]
  - Oedema peripheral [Unknown]
